FAERS Safety Report 6515791-3 (Version None)
Quarter: 2009Q4

REPORT INFORMATION
  Report Type: 
  Country: None (occurrence: None)
  Receive Date: 20091223
  Receipt Date: 20091214
  Transmission Date: 20100525
  Serious: Yes (Disabling)
  Sender: FDA-Public Use
  Company Number: PHHY2009IT51472

PATIENT
  Sex: Male

DRUGS (2)
  1. ZOMETA [Suspect]
     Indication: METASTASES TO BONE
     Dosage: 4 MG, QMO
     Route: 042
     Dates: start: 20021201, end: 20041201
  2. THALIDOMIDE [Concomitant]
     Dosage: 100 MG, UNK

REACTIONS (3)
  - DENTAL OPERATION [None]
  - OSTEONECROSIS [None]
  - SEQUESTRECTOMY [None]
